FAERS Safety Report 10549434 (Version 1)
Quarter: 2014Q4

REPORT INFORMATION
  Report Type: Report from Study
  Country: None (occurrence: None)
  Receive Date: 20141016
  Receipt Date: 20141016
  Transmission Date: 20150529
  Serious: No
  Sender: FDA-Public Use
  Company Number: CABO-14004589

PATIENT
  Age: 63 Year
  Sex: Male
  Weight: 78.2 kg

DRUGS (17)
  1. LANTUS [Concomitant]
     Active Substance: INSULIN GLARGINE
  2. LEVOTHYROXIN (LEVOTHYROXINE SODIUM) [Concomitant]
  3. COMETRIQ [Suspect]
     Active Substance: CABOZANTINIB S-MALATE
     Indication: THYROID CANCER
     Route: 048
     Dates: start: 20140726, end: 20140822
  4. FENTANYL (FENTANYL) [Concomitant]
     Active Substance: FENTANYL
  5. GABAPENTIN (GABAPENTIN) [Concomitant]
     Active Substance: GABAPENTIN
  6. IMODIUM (LOPERAMIDE HYDROCHLORIDE) [Concomitant]
  7. CREON [Concomitant]
     Active Substance: PANCRELIPASE AMYLASE\PANCRELIPASE LIPASE\PANCRELIPASE PROTEASE
  8. BENADRYL [Concomitant]
     Active Substance: DIPHENHYDRAMINE HYDROCHLORIDE
  9. CALCIUM CITRATE (CALCIUM CITRATE) [Concomitant]
  10. ZYRTEC [Concomitant]
     Active Substance: CETIRIZINE HYDROCHLORIDE
  11. VITAMIN D (CHOLECALCIFEROL) [Concomitant]
  12. HUMALOG [Concomitant]
     Active Substance: INSULIN LISPRO
  13. OXYCODONE (OXYCODONE) [Concomitant]
     Active Substance: OXYCODONE
  14. LOMOTIL (ATROPINE SULFATE, DIPHENOXYLATE HYDROCHLORIDE) [Concomitant]
  15. MORPHINE (MORPHINE) [Concomitant]
  16. CITRACAL (CALCIUM CITRATE) [Concomitant]
     Active Substance: CALCIUM CITRATE
  17. OMEPRAZOLE (OMEPRAZOLE) [Concomitant]
     Active Substance: OMEPRAZOLE

REACTIONS (3)
  - Myalgia [None]
  - Rash macular [None]
  - Discomfort [None]

NARRATIVE: CASE EVENT DATE: 2014
